FAERS Safety Report 9521540 (Version 1)
Quarter: 2013Q3

REPORT INFORMATION
  Report Type: Spontaneous
  Country: FR (occurrence: FR)
  Receive Date: 20130913
  Receipt Date: 20130913
  Transmission Date: 20140515
  Serious: Yes (Hospitalization)
  Sender: FDA-Public Use
  Company Number: FR-009507513-1309FRA002122

PATIENT
  Age: 83 Year
  Sex: Female

DRUGS (6)
  1. NORSET [Suspect]
     Dosage: 15 MG, QD
     Route: 048
     Dates: start: 20130805, end: 20130813
  2. LOVENOX [Concomitant]
  3. DOLIPRANE [Concomitant]
  4. INEXIUM [Concomitant]
  5. APROVEL [Concomitant]
  6. EBIXA [Concomitant]

REACTIONS (2)
  - Tonic clonic movements [Recovered/Resolved]
  - Language disorder [Recovered/Resolved]
